FAERS Safety Report 9343147 (Version 2)
Quarter: 2013Q3

REPORT INFORMATION
  Report Type: Spontaneous
  Country: US (occurrence: US)
  Receive Date: 20130611
  Receipt Date: 20130723
  Transmission Date: 20140515
  Serious: Yes (Hospitalization, Other)
  Sender: FDA-Public Use
  Company Number: US-PFIZER INC-2013173552

PATIENT
  Age: 63 Year
  Sex: Female
  Weight: 84 kg

DRUGS (2)
  1. PREMARIN [Suspect]
     Indication: HORMONE REPLACEMENT THERAPY
     Dosage: UNK
     Route: 048
     Dates: start: 1988, end: 2000
  2. PREMARIN [Suspect]
     Dosage: UNK

REACTIONS (7)
  - Haemorrhage [Recovered/Resolved]
  - Sepsis [Recovered/Resolved]
  - Pulmonary embolism [Recovered/Resolved]
  - Arthropathy [Unknown]
  - Malaise [Recovered/Resolved]
  - Thrombosis [Recovered/Resolved]
  - Diabetes mellitus [Not Recovered/Not Resolved]
